FAERS Safety Report 25663530 (Version 1)
Quarter: 2025Q3

REPORT INFORMATION
  Report Type: Spontaneous
  Country: GB (occurrence: GB)
  Receive Date: 20250811
  Receipt Date: 20250811
  Transmission Date: 20251020
  Serious: Yes (Other)
  Sender: TEVA
  Company Number: GB-MHRA-TPP64553821C4084499YC1754312658722

PATIENT
  Age: 19 Year
  Sex: Male
  Weight: 88 kg

DRUGS (1)
  1. LISDEXAMFETAMINE [Suspect]
     Active Substance: LISDEXAMFETAMINE
     Indication: Ill-defined disorder
     Route: 065

REACTIONS (2)
  - Rash macular [Recovering/Resolving]
  - Pruritus [Unknown]
